FAERS Safety Report 7380192-5 (Version None)
Quarter: 2011Q1

REPORT INFORMATION
  Report Type: 
  Country: None (occurrence: None)
  Receive Date: 20110329
  Receipt Date: 20110104
  Transmission Date: 20110831
  Serious: No
  Sender: FDA-Public Use
  Company Number: US-MYLANLABS-2010S1021784

PATIENT
  Age: 55 Year
  Sex: Female

DRUGS (3)
  1. ESTRADIOL [Suspect]
     Indication: MENOPAUSAL SYMPTOMS
     Dosage: CHANGED QW
     Route: 062
     Dates: start: 20100722, end: 20101116
  2. ESTRADIOL [Suspect]
     Indication: HORMONE REPLACEMENT THERAPY
     Dosage: CHANGED QW
     Route: 062
     Dates: start: 20100722, end: 20101116
  3. THYROID [Concomitant]
     Dates: start: 20100908

REACTIONS (2)
  - APPLICATION SITE VESICLES [None]
  - APPLICATION SITE URTICARIA [None]
